FAERS Safety Report 10529293 (Version 1)
Quarter: 2014Q4

REPORT INFORMATION
  Report Type: Spontaneous
  Country: US (occurrence: US)
  Receive Date: 20141020
  Receipt Date: 20141020
  Transmission Date: 20150528
  Serious: Yes (Death, Hospitalization, Other)
  Sender: FDA-Public Use
  Company Number: US-BRISTOL-MYERS SQUIBB COMPANY-21491493

PATIENT
  Age: 67 Year
  Sex: Male
  Weight: 78 kg

DRUGS (4)
  1. ASPIRIN. [Suspect]
     Active Substance: ASPIRIN
  2. TREPROSTINIL [Suspect]
     Active Substance: TREPROSTINIL
     Indication: PULMONARY HYPERTENSION
     Dosage: 0.024 MICROGRAM/KG,4-OCT14:LOT-A120201?0.032 MICROGRAM/KG,514
     Route: 041
     Dates: start: 20140410
  3. REVATIO [Concomitant]
     Active Substance: SILDENAFIL CITRATE
  4. COUMADIN [Suspect]
     Active Substance: WARFARIN SODIUM

REACTIONS (8)
  - Epistaxis [Unknown]
  - Nausea [Unknown]
  - Haemoptysis [Unknown]
  - Death [Fatal]
  - Haemorrhage [Unknown]
  - Myalgia [Unknown]
  - Gastrointestinal haemorrhage [Unknown]
  - International normalised ratio increased [Unknown]

NARRATIVE: CASE EVENT DATE: 2014
